FAERS Safety Report 25370219 (Version 2)
Quarter: 2025Q2

REPORT INFORMATION
  Report Type: Spontaneous
  Country: BR (occurrence: BR)
  Receive Date: 20250528
  Receipt Date: 20250613
  Transmission Date: 20250716
  Serious: Yes (Other)
  Sender: NOVO NORDISK
  Company Number: BR-NOVOPROD-1410088

PATIENT
  Age: 954 Month
  Sex: Male

DRUGS (1)
  1. TRESIBA [Suspect]
     Active Substance: INSULIN DEGLUDEC
     Indication: Product used for unknown indication

REACTIONS (5)
  - Blood glucose increased [Not Recovered/Not Resolved]
  - Device failure [Unknown]
  - Device issue [Unknown]
  - Prescription drug used without a prescription [Unknown]
  - Product storage error [Unknown]
